FAERS Safety Report 18276750 (Version 3)
Quarter: 2020Q4

REPORT INFORMATION
  Report Type: Spontaneous
  Country: JP (occurrence: JP)
  Receive Date: 20200917
  Receipt Date: 20201028
  Transmission Date: 20210113
  Serious: Yes (Hospitalization, Congenital Anomaly)
  Sender: FDA-Public Use
  Company Number: NVSJ2020JP008672

PATIENT
  Age: 83 Year
  Sex: Female

DRUGS (1)
  1. ENTRESTO [Suspect]
     Active Substance: SACUBITRIL\VALSARTAN
     Indication: CARDIAC FAILURE
     Dosage: 100 MG
     Route: 048
     Dates: start: 20200902, end: 20200904

REACTIONS (3)
  - Atrial septal defect [Unknown]
  - Concomitant disease aggravated [Unknown]
  - Anaemia [Unknown]

NARRATIVE: CASE EVENT DATE: 20200904
